FAERS Safety Report 5162396-5 (Version None)
Quarter: 2006Q4

REPORT INFORMATION
  Report Type: 
  Country: None (occurrence: None)
  Receive Date: 20061128
  Receipt Date: 20061128
  Transmission Date: 20070319
  Serious: Yes (Other)
  Sender: FDA-Public Use
  Company Number: None

PATIENT
  Age: 49 Year
  Sex: Male
  Weight: 97.977 kg

DRUGS (13)
  1. ALPHAGAN [Suspect]
     Indication: GLAUCOMA
     Dosage: 1 DROP EACH EYE Q8 HR
     Route: 047
  2. ACETAMINOPHEN [Concomitant]
  3. ARTIFICIAL TEARS POLYVINYL ALCOHOL [Concomitant]
  4. ASPIRIN [Concomitant]
  5. ATENOLOL [Concomitant]
  6. CELLUVISC 1% OPHTH SOLN [Concomitant]
  7. CYCLOBENZAPRINE HCL [Concomitant]
  8. FLUTICASONE PROP [Concomitant]
  9. GUAIFENESIN [Concomitant]
  10. TRIAMTERENE AND HYDROCHLOROTHIAZIDE [Concomitant]
  11. LORATADINE [Concomitant]
  12. NAPROXEN [Concomitant]
  13. RABEPRAZOLE SODIUM [Concomitant]

REACTIONS (1)
  - CONJUNCTIVITIS [None]
